FAERS Safety Report 6126565-X (Version None)
Quarter: 2009Q1

REPORT INFORMATION
  Report Type: 
  Country: None (occurrence: None)
  Receive Date: 20090320
  Receipt Date: 20090320
  Transmission Date: 20090719
  Serious: Yes (Other)
  Sender: FDA-Public Use
  Company Number: US-PFIZER INC-2009165664

PATIENT
  Sex: Female
  Weight: 84 kg

DRUGS (3)
  1. CELEBREX [Suspect]
     Indication: ARTHRITIS
     Dosage: 200 MG, 2X/DAY
     Dates: start: 20080501, end: 20080101
  2. PROZAC [Concomitant]
  3. ADVAIR HFA [Concomitant]

REACTIONS (5)
  - CONTUSION [None]
  - HAEMORRHAGE [None]
  - SCAR [None]
  - SKIN DISORDER [None]
  - SKIN LESION [None]
